FAERS Safety Report 5910434-1 (Version None)
Quarter: 2008Q4

REPORT INFORMATION
  Report Type: 
  Country: None (occurrence: None)
  Receive Date: 20081006
  Receipt Date: 20081006
  Transmission Date: 20090506
  Serious: Yes (Other)
  Sender: FDA-Public Use
  Company Number: None

PATIENT
  Age: 39 Year
  Sex: Female
  Weight: 62.5964 kg

DRUGS (1)
  1. VCF VAGINAL CONTRACEPTIVE FILM [Suspect]
     Indication: CONTRACEPTION
     Dosage: ONE DOSE
     Dates: start: 20080715, end: 20081001

REACTIONS (3)
  - DISCOMFORT [None]
  - VAGINAL HAEMORRHAGE [None]
  - VULVOVAGINAL PRURITUS [None]
